FAERS Safety Report 21921964 (Version 4)
Quarter: 2025Q2

REPORT INFORMATION
  Report Type: Report from Study
  Country: BE (occurrence: BE)
  Receive Date: 20230127
  Receipt Date: 20250529
  Transmission Date: 20250717
  Serious: Yes (Hospitalization, Other)
  Sender: NOVARTIS
  Company Number: BE-002147023-NVSC2023BE014698

PATIENT
  Age: 11 Year
  Sex: Male
  Weight: 29.8 kg

DRUGS (8)
  1. TAFINLAR [Suspect]
     Active Substance: DABRAFENIB MESYLATE
     Indication: Brain neoplasm malignant
     Route: 048
     Dates: start: 20230114, end: 20230120
  2. TAFINLAR [Suspect]
     Active Substance: DABRAFENIB MESYLATE
     Route: 048
     Dates: start: 20230125, end: 20230217
  3. TAFINLAR [Suspect]
     Active Substance: DABRAFENIB MESYLATE
     Route: 048
     Dates: end: 20241106
  4. MEKINIST [Suspect]
     Active Substance: TRAMETINIB DIMETHYL SULFOXIDE
     Indication: Brain neoplasm malignant
     Route: 048
     Dates: start: 20230114, end: 20230120
  5. MEKINIST [Suspect]
     Active Substance: TRAMETINIB DIMETHYL SULFOXIDE
     Route: 048
     Dates: start: 20230125, end: 20230217
  6. MEKINIST [Suspect]
     Active Substance: TRAMETINIB DIMETHYL SULFOXIDE
     Dosage: 0.7 MG, QD
     Route: 048
     Dates: start: 20230220
  7. MEKINIST [Suspect]
     Active Substance: TRAMETINIB DIMETHYL SULFOXIDE
     Route: 048
     Dates: end: 20241106
  8. TRILEPTAL [Concomitant]
     Active Substance: OXCARBAZEPINE
     Indication: Epilepsy
     Dosage: 600 MG, BID
     Route: 065
     Dates: start: 20221130

REACTIONS (14)
  - Panniculitis [Recovered/Resolved]
  - Erythema nodosum [Recovered/Resolved]
  - Sensitive skin [Unknown]
  - Pyrexia [Recovered/Resolved]
  - Streptococcal sepsis [Recovered/Resolved]
  - Infection [Unknown]
  - Influenza like illness [Unknown]
  - Pyrexia [Recovered/Resolved]
  - Chills [Recovered/Resolved]
  - Petechiae [Recovered/Resolved]
  - Dehydration [Recovered/Resolved]
  - Fatigue [Recovered/Resolved]
  - Mucosal inflammation [Recovered/Resolved]
  - Quality of life decreased [Unknown]

NARRATIVE: CASE EVENT DATE: 20230120
